FAERS Safety Report 8746334 (Version 6)
Quarter: 2012Q4

REPORT INFORMATION
  Report Type: Report from Study
  Country: FR (occurrence: FR)
  Receive Date: 20120827
  Receipt Date: 20121101
  Transmission Date: 20130627
  Serious: Yes (Hospitalization)
  Sender: FDA-Public Use
  Company Number: PHHY2012FR073220

PATIENT
  Sex: Female
  Weight: 56 kg

DRUGS (9)
  1. ACLASTA/ZOLEDRONATE [Suspect]
     Indication: OSTEOPOROSIS
     Route: 042
     Dates: start: 20110622
  2. FORSTEO [Concomitant]
     Dates: start: 2011
  3. CALCIDOSE [Concomitant]
     Dosage: UNK
     Dates: start: 2011
  4. PARACETAMOL [Concomitant]
     Dates: start: 2011, end: 201201
  5. MORPHINE [Concomitant]
     Dates: start: 2011, end: 201108
  6. IXPRIM [Concomitant]
     Dates: start: 2011, end: 201109
  7. THIOCOLCHICOSIDE [Concomitant]
     Dates: start: 2011
  8. ACTISKENAN [Concomitant]
     Dosage: UNK
     Dates: start: 2011, end: 201109
  9. ENALAPRIL [Concomitant]
     Dosage: UNK
     Dates: start: 2011, end: 201110

REACTIONS (4)
  - Device related infection [Unknown]
  - Ulcer [Unknown]
  - Foot deformity [Unknown]
  - Sepsis [Recovered/Resolved]
